FAERS Safety Report 10151992 (Version 2)
Quarter: 2014Q3

REPORT INFORMATION
  Report Type: Spontaneous
  Country: US (occurrence: None)
  Receive Date: 20140501
  Receipt Date: 20140916
  Transmission Date: 20150326
  Serious: Yes (Other)
  Sender: FDA-Public Use
  Company Number: 2014-US-003682

PATIENT
  Age: 36 Year
  Sex: Female
  Weight: 109.3 kg

DRUGS (3)
  1. ESTRADIOL. [Concomitant]
     Active Substance: ESTRADIOL
  2. ADDERALL [Concomitant]
     Active Substance: AMPHETAMINE ASPARTATE\AMPHETAMINE SULFATE\DEXTROAMPHETAMINE SACCHARATE\DEXTROAMPHETAMINE SULFATE
  3. XYREM [Suspect]
     Active Substance: SODIUM OXYBATE
     Indication: NARCOLEPSY
     Route: 048
     Dates: start: 20140316, end: 201403

REACTIONS (17)
  - Rhinorrhoea [None]
  - Vision blurred [None]
  - Choking sensation [None]
  - Pain [None]
  - Muscle tightness [None]
  - Paraesthesia oral [None]
  - Lacrimation increased [None]
  - Confusional state [None]
  - Amnesia [None]
  - Throat irritation [None]
  - Swollen tongue [None]
  - Ear discomfort [None]
  - Memory impairment [None]
  - Stomatitis [None]
  - Glossitis [None]
  - Ear pain [None]
  - Oral discomfort [None]

NARRATIVE: CASE EVENT DATE: 201403
